FAERS Safety Report 8327230-0 (Version None)
Quarter: 2012Q2

REPORT INFORMATION
  Report Type: 
  Country: None (occurrence: None)
  Receive Date: 20120501
  Receipt Date: 20120426
  Transmission Date: 20120825
  Serious: Yes (Hospitalization)
  Sender: FDA-Public Use
  Company Number: JP-ALLERGAN-1206020US

PATIENT
  Age: 79 Year
  Sex: Male

DRUGS (1)
  1. LUMIGAN [Suspect]
     Indication: OPEN ANGLE GLAUCOMA
     Dosage: 1 GTT, QAM
     Route: 047
     Dates: start: 20111209, end: 20120126

REACTIONS (3)
  - VISUAL FIELD DEFECT [None]
  - VISUAL ACUITY REDUCED [None]
  - CEREBRAL INFARCTION [None]
